FAERS Safety Report 14820538 (Version 1)
Quarter: 2018Q2

REPORT INFORMATION
  Report Type: Spontaneous
  Country: US (occurrence: US)
  Receive Date: 20180427
  Receipt Date: 20180427
  Transmission Date: 20180711
  Serious: No
  Sender: FDA-Public Use
  Company Number: US-HORIZON-PEN-0297-2018

PATIENT
  Age: 65 Year
  Sex: Female

DRUGS (1)
  1. PENNSAID [Suspect]
     Active Substance: DICLOFENAC SODIUM
     Indication: OSTEOARTHRITIS
     Dosage: 1 PACKET TWICE A DAY
     Dates: start: 20180417

REACTIONS (3)
  - Inability to afford medication [Unknown]
  - Off label use [Unknown]
  - Cyst [Unknown]

NARRATIVE: CASE EVENT DATE: 20180417
